FAERS Safety Report 12172327 (Version 2)
Quarter: 2016Q1

REPORT INFORMATION
  Report Type: Spontaneous
  Country: CA (occurrence: CA)
  Receive Date: 20160311
  Receipt Date: 20160315
  Transmission Date: 20160526
  Serious: Yes (Death, Other)
  Sender: FDA-Public Use
  Company Number: CA-BAXTER-2016BAX010467

PATIENT
  Sex: Female

DRUGS (24)
  1. GENTAMICIN 80 MG [Suspect]
     Active Substance: GENTAMICIN
     Indication: EVIDENCE BASED TREATMENT
  2. SULFAMETH/TRIMETH [Suspect]
     Active Substance: SULFAMETHOXAZOLE\TRIMETHOPRIM
     Route: 048
  3. GENTAMICIN 80 MG [Suspect]
     Active Substance: GENTAMICIN
     Indication: ANTIBIOTIC THERAPY
     Route: 065
  4. GENTAMICIN 80 MG [Suspect]
     Active Substance: GENTAMICIN
     Indication: FOETAL EXPOSURE TIMING UNSPECIFIED
  5. AMPICILLIN SODIUM/AMPICILLIN TRIHYDRATE [Suspect]
     Active Substance: AMPICILLIN SODIUM\AMPICILLIN TRIHYDRATE
     Indication: FOETAL EXPOSURE TIMING UNSPECIFIED
  6. CEFOTAXIME [Suspect]
     Active Substance: CEFOTAXIME SODIUM
     Indication: ANTIBIOTIC THERAPY
     Route: 065
  7. VANCOMYCIN [Suspect]
     Active Substance: VANCOMYCIN
     Indication: ANTIBIOTIC THERAPY
     Route: 065
  8. SULFAMETH/TRIMETH [Suspect]
     Active Substance: SULFAMETHOXAZOLE\TRIMETHOPRIM
     Route: 048
  9. AMPICILLIN SODIUM/AMPICILLIN TRIHYDRATE [Suspect]
     Active Substance: AMPICILLIN SODIUM\AMPICILLIN TRIHYDRATE
     Indication: EVIDENCE BASED TREATMENT
     Route: 064
  10. VANCOMYCIN [Suspect]
     Active Substance: VANCOMYCIN
     Indication: EVIDENCE BASED TREATMENT
     Route: 065
  11. SULFAMETH/TRIMETH [Suspect]
     Active Substance: SULFAMETHOXAZOLE\TRIMETHOPRIM
     Indication: STENOTROPHOMONAS INFECTION
     Route: 065
  12. MEROPENEM. [Suspect]
     Active Substance: MEROPENEM
     Indication: FOETAL EXPOSURE TIMING UNSPECIFIED
  13. SULFAMETH/TRIMETH [Suspect]
     Active Substance: SULFAMETHOXAZOLE\TRIMETHOPRIM
     Indication: FOETAL EXPOSURE TIMING UNSPECIFIED
     Route: 048
  14. AMPICILLIN SODIUM/AMPICILLIN TRIHYDRATE [Suspect]
     Active Substance: AMPICILLIN SODIUM\AMPICILLIN TRIHYDRATE
     Indication: ANTIBIOTIC THERAPY
     Route: 042
  15. CEFOTAXIME [Suspect]
     Active Substance: CEFOTAXIME SODIUM
     Indication: FOETAL EXPOSURE TIMING UNSPECIFIED
  16. VANCOMYCIN [Suspect]
     Active Substance: VANCOMYCIN
     Indication: FOETAL EXPOSURE TIMING UNSPECIFIED
  17. LEVOFLOXACIN. [Suspect]
     Active Substance: LEVOFLOXACIN
     Indication: FOETAL EXPOSURE TIMING UNSPECIFIED
     Route: 048
  18. CEFOTAXIME [Suspect]
     Active Substance: CEFOTAXIME SODIUM
     Indication: RENAL FAILURE
     Route: 065
  19. CEFOTAXIME [Suspect]
     Active Substance: CEFOTAXIME SODIUM
     Indication: EVIDENCE BASED TREATMENT
  20. LEVOFLOXACIN. [Suspect]
     Active Substance: LEVOFLOXACIN
     Indication: STENOTROPHOMONAS INFECTION
     Route: 048
  21. MEROPENEM. [Suspect]
     Active Substance: MEROPENEM
     Indication: RESPIRATORY TRACT INFECTION
     Route: 065
  22. ERYTHROMYCIN. [Suspect]
     Active Substance: ERYTHROMYCIN
     Indication: FOETAL EXPOSURE TIMING UNSPECIFIED
     Route: 064
  23. BETAMETHASON [Suspect]
     Active Substance: BETAMETHASONE
     Indication: FOETAL EXPOSURE TIMING UNSPECIFIED
     Route: 064
  24. SULFAMETH/TRIMETH [Suspect]
     Active Substance: SULFAMETHOXAZOLE\TRIMETHOPRIM
     Route: 065

REACTIONS (13)
  - Lethargy [Unknown]
  - Exposure during pregnancy [Unknown]
  - Death neonatal [Fatal]
  - Pneumonia [Unknown]
  - Stenotrophomonas infection [Unknown]
  - Umbilical erythema [Unknown]
  - Foetal exposure during pregnancy [Unknown]
  - Renal failure [Unknown]
  - Sepsis [Unknown]
  - Hypotonia [Unknown]
  - Premature baby [Unknown]
  - Respiratory disorder [Unknown]
  - Pneumonia bacterial [Unknown]
